FAERS Safety Report 15674911 (Version 3)
Quarter: 2018Q4

REPORT INFORMATION
  Report Type: Report from Study
  Country: CN (occurrence: CN)
  Receive Date: 20181130
  Receipt Date: 20181219
  Transmission Date: 20190205
  Serious: Yes (Hospitalization)
  Sender: FDA-Public Use
  Company Number: CN-ROCHE-2221229

PATIENT
  Age: 57 Year
  Sex: Female
  Weight: 56 kg

DRUGS (8)
  1. RITUXIMAB. [Suspect]
     Active Substance: RITUXIMAB
     Indication: B-CELL LYMPHOMA
     Dosage: 375 MILLIGRAMS PER SQUARE METER (MG/M2) EVERY 2 MONTHS DURING MAINTENANCE PERIOD. (MAINTENANCE DOSE)
     Route: 042
     Dates: start: 20130430
  2. PARACETAMOL [Concomitant]
     Active Substance: ACETAMINOPHEN
     Indication: PAIN
     Route: 065
     Dates: start: 20140526, end: 20140526
  3. VINCRISTINE [Suspect]
     Active Substance: VINCRISTINE
     Indication: B-CELL LYMPHOMA
     Dosage: IV PUSH?1.4 MG/M^2 (MAXIMUM 2 MG) ON DAY 1 OF EACH CYCLE DURING INDUCTION PERIOD.?ON 26/MAR/2014, MO
     Route: 042
  4. PROMETHAZINE HYDROCHLORIDE. [Concomitant]
     Active Substance: PROMETHAZINE HYDROCHLORIDE
     Indication: SEDATION
     Dosage: NEEDLE
     Route: 065
     Dates: start: 20140526, end: 20140526
  5. PSEUDOEPHEDRINE HCL [Concomitant]
     Active Substance: PSEUDOEPHEDRINE HYDROCHLORIDE
     Indication: INFLUENZA
     Route: 065
     Dates: start: 20140526, end: 20140606
  6. PREDNISONE. [Suspect]
     Active Substance: PREDNISONE
     Indication: B-CELL LYMPHOMA
     Dosage: ON DAYS 1 TO 5 OF EACH CYCLE DURING INDUCTION PERIOD.?ON 26/MAR/2014, MOST RECENT DOSE (25 MG)
     Route: 048
     Dates: start: 20130501
  7. CYCLOPHOSPHAMIDE. [Suspect]
     Active Substance: CYCLOPHOSPHAMIDE
     Indication: B-CELL LYMPHOMA
     Dosage: ON 26/MAR/2014, MOST RECENT DOSE (1237.5 MG).
     Route: 042
     Dates: start: 20130501
  8. DOXORUBICIN [Suspect]
     Active Substance: DOXORUBICIN
     Indication: B-CELL LYMPHOMA
     Dosage: ON 26/MAR/2014, MOST RECENT DOSE (82.5 MG).
     Route: 042
     Dates: start: 20130501

REACTIONS (1)
  - White blood cells urine positive [Recovered/Resolved]

NARRATIVE: CASE EVENT DATE: 20140522
